FAERS Safety Report 13025015 (Version 1)
Quarter: 2016Q4

REPORT INFORMATION
  Report Type: Spontaneous
  Country: US (occurrence: US)
  Receive Date: 20161213
  Receipt Date: 20161213
  Transmission Date: 20170207
  Serious: No
  Sender: FDA-Public Use
  Company Number: US-SHIRE-US201618473

PATIENT
  Age: 23 Year
  Sex: Female
  Weight: 58.96 kg

DRUGS (1)
  1. XIIDRA [Suspect]
     Active Substance: LIFITEGRAST
     Indication: DRY EYE
     Dosage: UNK UNK, 2X/DAY:BID,  EVERY 12 HOURS
     Route: 047
     Dates: start: 201609

REACTIONS (2)
  - Eye irritation [Unknown]
  - Eye disorder [Unknown]

NARRATIVE: CASE EVENT DATE: 201611
